FAERS Safety Report 6026467-3 (Version None)
Quarter: 2009Q1

REPORT INFORMATION
  Report Type: 
  Country: None (occurrence: None)
  Receive Date: 20090102
  Receipt Date: 20081222
  Transmission Date: 20090719
  Serious: Yes (Other)
  Sender: FDA-Public Use
  Company Number: PL-PFIZER INC-2008159339

PATIENT

DRUGS (3)
  1. ZELDOX [Suspect]
     Indication: AGITATION
     Dosage: FREQUENCY: 3XD,
     Route: 030
     Dates: start: 20081208, end: 20081210
  2. ZELDOX [Suspect]
     Indication: PARANOIA
  3. RELANIUM [Concomitant]
     Dosage: UNK
     Route: 030
     Dates: start: 20081208, end: 20081211

REACTIONS (2)
  - AGGRESSION [None]
  - AGITATION [None]
